FAERS Safety Report 4511216-8 (Version None)
Quarter: 2004Q4

REPORT INFORMATION
  Report Type: 
  Country: None (occurrence: None)
  Receive Date: 20041122
  Receipt Date: 20041122
  Transmission Date: 20050328
  Serious: Yes (Other)
  Sender: FDA-Public Use
  Company Number: None

PATIENT
  Age: 29 Year
  Sex: Female
  Weight: 77.1115 kg

DRUGS (1)
  1. EFFEXOR XR [Suspect]
     Indication: DEPRESSION
     Dosage: 112.5MG   ONCE A DAY  ORAL
     Route: 048
     Dates: start: 20040102, end: 20041115

REACTIONS (2)
  - FEELING ABNORMAL [None]
  - IMPAIRED WORK ABILITY [None]
